FAERS Safety Report 15552796 (Version 1)
Quarter: 2018Q4

REPORT INFORMATION
  Report Type: Spontaneous
  Country: US (occurrence: US)
  Receive Date: 20181025
  Receipt Date: 20181025
  Transmission Date: 20190205
  Serious: Yes (Hospitalization, Other)
  Sender: FDA-Public Use
  Company Number: US-ZYDUS-029230

PATIENT
  Age: 43 Year
  Sex: Male

DRUGS (11)
  1. OXYCODONE [Suspect]
     Active Substance: OXYCODONE
     Indication: PRODUCT USED FOR UNKNOWN INDICATION
     Route: 065
  2. HEPARIN [Concomitant]
     Active Substance: HEPARIN SODIUM
     Indication: PROPHYLAXIS
     Route: 058
  3. OXYCODONE [Suspect]
     Active Substance: OXYCODONE
     Indication: PRODUCT USED FOR UNKNOWN INDICATION
     Route: 042
  4. PARACETAMOL [Concomitant]
     Active Substance: ACETAMINOPHEN
     Indication: PRODUCT USED FOR UNKNOWN INDICATION
     Route: 048
  5. GABAPENTIN. [Concomitant]
     Active Substance: GABAPENTIN
     Indication: DIABETIC NEUROPATHY
     Route: 065
  6. WARFARIN [Concomitant]
     Active Substance: WARFARIN
     Indication: DEEP VEIN THROMBOSIS
     Route: 065
  7. CLINDAMYCIN. [Concomitant]
     Active Substance: CLINDAMYCIN
     Indication: PRODUCT USED FOR UNKNOWN INDICATION
     Route: 065
  8. PIPERACILLIN/TAZOBACTAM [Concomitant]
     Indication: PRODUCT USED FOR UNKNOWN INDICATION
     Route: 065
  9. HYDROMORPHONE/HYDROMORPHONE HYDROCHLORIDE [Concomitant]
     Indication: PAIN
     Route: 042
  10. OXYCODONE [Suspect]
     Active Substance: OXYCODONE
     Indication: PAIN
     Route: 048
  11. INSULIN [Concomitant]
     Active Substance: INSULIN NOS
     Indication: TYPE 1 DIABETES MELLITUS
     Route: 065

REACTIONS (8)
  - Microangiopathic haemolytic anaemia [Recovered/Resolved]
  - Headache [Recovered/Resolved]
  - Thrombocytopenia [Recovered/Resolved]
  - Intentional product use issue [Unknown]
  - Thrombotic microangiopathy [Recovered/Resolved]
  - Intentional product misuse [Unknown]
  - Hyperbilirubinaemia [Recovered/Resolved]
  - Leukocytosis [Recovered/Resolved]
